FAERS Safety Report 26082547 (Version 1)
Quarter: 2025Q4

REPORT INFORMATION
  Report Type: Spontaneous
  Country: US (occurrence: US)
  Receive Date: 20251124
  Receipt Date: 20251124
  Transmission Date: 20260118
  Serious: Yes (Other)
  Sender: CYCLE PHARMACEUTICALS
  Company Number: US-CYCLE PHARMACEUTICALS LTD-2025-CYC-000195

PATIENT

DRUGS (1)
  1. HARLIKU [Suspect]
     Active Substance: NITISINONE
     Indication: Alkaptonuria
     Dosage: 2 MG, QD
     Route: 048
     Dates: start: 20250828

REACTIONS (1)
  - Vision blurred [Recovered/Resolved]

NARRATIVE: CASE EVENT DATE: 20250101
